FAERS Safety Report 23557496 (Version 1)
Quarter: 2024Q1

REPORT INFORMATION
  Report Type: Spontaneous
  Country: FR (occurrence: FR)
  Receive Date: 20240223
  Receipt Date: 20240223
  Transmission Date: 20240410
  Serious: Yes (Other)
  Sender: FDA-Public Use
  Company Number: FR-ADVANZ PHARMA-202402001645

PATIENT

DRUGS (1)
  1. ZONISAMIDE [Suspect]
     Active Substance: ZONISAMIDE
     Indication: Product used for unknown indication
     Dosage: 500 MG, QD (ZONEGRAN GELULE EVERY 1 DAY)
     Route: 065

REACTIONS (3)
  - Seizure [Unknown]
  - Therapeutic response changed [Unknown]
  - Product availability issue [Unknown]
